FAERS Safety Report 4272241-8 (Version None)
Quarter: 2004Q1

REPORT INFORMATION
  Report Type: 
  Country: None (occurrence: None)
  Receive Date: 20040114
  Receipt Date: 20040108
  Transmission Date: 20041129
  Serious: Yes (Hospitalization)
  Sender: FDA-Public Use
  Company Number: 163-20785-03100039(1)

PATIENT
  Age: 75 Year
  Sex: Male

DRUGS (1)
  1. THALOMID [Suspect]
     Indication: ACUTE MYELOID LEUKAEMIA
     Dosage: 200 MG, DAILY, ORAL
     Route: 048
     Dates: start: 20010822, end: 20030926

REACTIONS (5)
  - ACUTE MYELOID LEUKAEMIA [None]
  - MALIGNANT NEOPLASM PROGRESSION [None]
  - MYELODYSPLASTIC SYNDROME [None]
  - PNEUMONIA [None]
  - RECTAL ABSCESS [None]
